FAERS Safety Report 16578111 (Version 4)
Quarter: 2019Q3

REPORT INFORMATION
  Report Type: Spontaneous
  Country: US (occurrence: US)
  Receive Date: 20190716
  Receipt Date: 20190829
  Transmission Date: 20191004
  Serious: No
  Sender: FDA-Public Use
  Company Number: US-PFIZER INC-2019303134

PATIENT
  Age: 52 Year
  Sex: Male
  Weight: 72.57 kg

DRUGS (2)
  1. DEPO-ESTRADIOL [Suspect]
     Active Substance: ESTRADIOL CYPIONATE
     Indication: TRANS-SEXUALISM
     Dosage: EVERY 10 DAYS
  2. DEPO-ESTRADIOL [Suspect]
     Active Substance: ESTRADIOL CYPIONATE
     Dosage: 1 ML, WEEKLY, (ONCE A WEEK), (EVERY 7 DAYS)
     Dates: start: 2011

REACTIONS (8)
  - Product use issue [Unknown]
  - Migraine [Unknown]
  - Hot flush [Unknown]
  - Incorrect dose administered [Unknown]
  - Product complaint [Unknown]
  - Off label use [Unknown]
  - Blood oestrogen increased [Unknown]
  - Blood testosterone decreased [Unknown]
